FAERS Safety Report 7576290-3 (Version None)
Quarter: 2011Q2

REPORT INFORMATION
  Report Type: 
  Country: None (occurrence: None)
  Receive Date: 20110623
  Receipt Date: 20110623
  Transmission Date: 20111010
  Serious: No
  Sender: FDA-Public Use
  Company Number: None

PATIENT
  Age: 60 Year
  Sex: Female

DRUGS (2)
  1. ISONIAZID [Suspect]
     Dates: start: 20090925, end: 20100120
  2. MACROBID [Suspect]
     Dates: start: 20100101, end: 20100108

REACTIONS (8)
  - HEPATITIS CHOLESTATIC [None]
  - HEPATITIS ACUTE [None]
  - HAEMATURIA [None]
  - URINARY TRACT INFECTION [None]
  - HYDRONEPHROSIS [None]
  - GALLBLADDER DISORDER [None]
  - PERIPORTAL OEDEMA [None]
  - LIVER DISORDER [None]
